FAERS Safety Report 5118472-6 (Version None)
Quarter: 2006Q4

REPORT INFORMATION
  Report Type: 
  Country: None (occurrence: None)
  Receive Date: 20061002
  Receipt Date: 20060922
  Transmission Date: 20070319
  Serious: Yes (Hospitalization, Other)
  Sender: FDA-Public Use
  Company Number: PHBS2006JP14843

PATIENT
  Age: 81 Year
  Sex: Male

DRUGS (1)
  1. PARLODEL [Suspect]
     Indication: PARKINSON'S DISEASE
     Dosage: 20 MG/DAY
     Route: 048

REACTIONS (3)
  - CARDIAC VALVE DISEASE [None]
  - DYSPNOEA [None]
  - PLEURAL EFFUSION [None]
